FAERS Safety Report 12695766 (Version 1)
Quarter: 2016Q3

REPORT INFORMATION
  Report Type: Spontaneous
  Country: US (occurrence: US)
  Receive Date: 20160829
  Receipt Date: 20160829
  Transmission Date: 20161109
  Serious: No
  Sender: FDA-Public Use
  Company Number: US-BIOGEN-2016BI00280329

PATIENT
  Sex: Female

DRUGS (3)
  1. TYSABRI [Suspect]
     Active Substance: NATALIZUMAB
     Route: 065
     Dates: start: 20140602, end: 20150921
  2. TECFIDERA [Suspect]
     Active Substance: DIMETHYL FUMARATE
     Indication: MULTIPLE SCLEROSIS
     Route: 065
  3. TYSABRI [Suspect]
     Active Substance: NATALIZUMAB
     Indication: MULTIPLE SCLEROSIS
     Route: 065
     Dates: start: 20100505, end: 20111215

REACTIONS (8)
  - Memory impairment [Not Recovered/Not Resolved]
  - Activities of daily living impaired [Unknown]
  - Dysstasia [Unknown]
  - Akinesia [Unknown]
  - Intentional product use issue [Unknown]
  - Mobility decreased [Not Recovered/Not Resolved]
  - Abasia [Unknown]
  - Dysphagia [Not Recovered/Not Resolved]
